FAERS Safety Report 24628646 (Version 1)
Quarter: 2024Q4

REPORT INFORMATION
  Report Type: Spontaneous
  Country: US (occurrence: US)
  Receive Date: 20241117
  Receipt Date: 20241117
  Transmission Date: 20250114
  Serious: No
  Sender: BAUSCH AND LOMB
  Company Number: US-BAUSCHBL-2024BNL037209

PATIENT
  Sex: Female

DRUGS (1)
  1. ZIRGAN [Suspect]
     Active Substance: GANCICLOVIR
     Indication: Product used for unknown indication
     Route: 047

REACTIONS (2)
  - Product packaging quantity issue [Unknown]
  - Product dose omission in error [Unknown]
